FAERS Safety Report 15084145 (Version 1)
Quarter: 2018Q3

REPORT INFORMATION
  Report Type: Spontaneous
  Country: FR (occurrence: FR)
  Receive Date: 20180628
  Receipt Date: 20180628
  Transmission Date: 20181010
  Serious: Yes (Other)
  Sender: FDA-Public Use
  Company Number: FR-MYLANLABS-2018M1046377

PATIENT
  Age: 34 Year
  Sex: Female

DRUGS (1)
  1. PARLODEL [Suspect]
     Active Substance: BROMOCRIPTINE MESYLATE
     Indication: SUPPRESSED LACTATION
     Dosage: 1 DF, UNK
     Route: 048
     Dates: start: 20180607, end: 20180607

REACTIONS (6)
  - Vertigo [Recovered/Resolved]
  - Wrong technique in product usage process [None]
  - Product use in unapproved indication [Recovered/Resolved]
  - Syncope [Recovered/Resolved]
  - Vomiting [Recovered/Resolved]
  - Incorrect dose administered [Unknown]

NARRATIVE: CASE EVENT DATE: 20180607
